FAERS Safety Report 9890051 (Version 1)
Quarter: 2014Q1

REPORT INFORMATION
  Report Type: Spontaneous
  Country: US (occurrence: US)
  Receive Date: 20140212
  Receipt Date: 20140212
  Transmission Date: 20141002
  Serious: No
  Sender: FDA-Public Use
  Company Number: US-BIOGENIDEC-2014BI011024

PATIENT
  Age: 55 Year
  Sex: Male

DRUGS (22)
  1. TECFIDERA [Suspect]
     Indication: MULTIPLE SCLEROSIS
     Route: 048
  2. FLOMAX [Concomitant]
     Route: 048
  3. LORAZEPAM [Concomitant]
     Route: 048
  4. LASIX [Concomitant]
     Route: 048
  5. LINZESS [Concomitant]
     Route: 048
  6. MILK OF MAGNESIA [Concomitant]
     Route: 048
  7. NEURONTIN [Concomitant]
     Route: 048
  8. SENNA LAX [Concomitant]
     Route: 048
  9. SENNA LAX [Concomitant]
     Route: 048
  10. TYLENOL [Concomitant]
     Route: 048
  11. VICODIN [Concomitant]
     Route: 048
  12. ZANAFLEX [Concomitant]
     Route: 048
  13. ZOLOFT [Concomitant]
     Route: 048
  14. ASPIRIN [Concomitant]
  15. BACLOFEN [Concomitant]
     Route: 048
  16. DICYCLOMINE [Concomitant]
     Route: 048
  17. DICYCLOMINE [Concomitant]
     Route: 048
  18. MELOXICAM [Concomitant]
     Route: 048
  19. OMEPRAZOLE [Concomitant]
     Route: 048
  20. TRAMADOL [Concomitant]
     Route: 048
  21. TRAMADOL [Concomitant]
     Route: 048
  22. TRAZODONE [Concomitant]
     Route: 048

REACTIONS (1)
  - Gastric disorder [Recovered/Resolved]
